FAERS Safety Report 8406906-0 (Version None)
Quarter: 2012Q2

REPORT INFORMATION
  Report Type: 
  Country: None (occurrence: None)
  Receive Date: 20120529
  Receipt Date: 20050207
  Transmission Date: 20120825
  Serious: Yes (Hospitalization, Other)
  Sender: FDA-Public Use
  Company Number: 02100-JPN-05-0097

PATIENT
  Age: 72 Year
  Sex: Male

DRUGS (16)
  1. PLANJIN (PIPERACILLIN SODIUM) [Concomitant]
  2. PHENYTOIN [Concomitant]
  3. WAKOBITAL (PHENOBARBITAL SODIUM) [Concomitant]
  4. PLETAL [Suspect]
     Indication: CEREBRAL INFARCTION
     Dosage: 100 MG, BID, ORAL
     Route: 048
     Dates: start: 20040219, end: 20061220
  5. LUCIDRIL (MECLOFENOXATE HYDROCHLORIDE) [Concomitant]
  6. LIVACT (AMINO ACIDS NOS) [Concomitant]
  7. SOLOCOSERYL (BLOOD, CALF, DEPROT., LMW PORTION) [Concomitant]
  8. EPIRENAT (VALPROATE SODIUM) [Concomitant]
  9. MINOCYCLINE HCL [Concomitant]
  10. METLIGINE (MIDODRINE HYDROCHLORIDE) [Concomitant]
  11. NICHOLIN (CITICOLINE) [Concomitant]
  12. VOLTAREN [Concomitant]
  13. PROTERNOL (ISOPRENALINE HYDROCHLORIDE) [Concomitant]
  14. LEVOFLOXACIN [Concomitant]
  15. PIPERACILLIN SODIUM [Concomitant]
  16. CLEANAL (FUDOSTEINE) [Concomitant]

REACTIONS (4)
  - ALTERED STATE OF CONSCIOUSNESS [None]
  - PNEUMONIA ASPIRATION [None]
  - THROMBOTIC CEREBRAL INFARCTION [None]
  - PETIT MAL EPILEPSY [None]
